FAERS Safety Report 19685064 (Version 1)
Quarter: 2021Q3

REPORT INFORMATION
  Report Type: Spontaneous
  Country: US (occurrence: US)
  Receive Date: 20210811
  Receipt Date: 20210811
  Transmission Date: 20211014
  Serious: Yes (Other)
  Sender: FDA-Public Use
  Company Number: US-JNJFOC-20210803315

PATIENT
  Sex: Female

DRUGS (1)
  1. NEUTROGENA AGE SHIELD FACE OIL FREE SUNSCRN BR^D SPECT SPF 70 (AV\HOM\OCTI\OCTO) [Suspect]
     Active Substance: AVOBENZONE\HOMOSALATE\OCTISALATE\OCTOCRYLENE
     Indication: PROPHYLAXIS AGAINST SOLAR RADIATION
     Dosage: APPLIED LIBERALLY
     Route: 061
     Dates: start: 20200802

REACTIONS (1)
  - Skin cancer [Unknown]
